FAERS Safety Report 5875655-5 (Version None)
Quarter: 2008Q3

REPORT INFORMATION
  Report Type: 
  Country: None (occurrence: None)
  Receive Date: 20080909
  Receipt Date: 20080829
  Transmission Date: 20090109
  Serious: Yes (Hospitalization)
  Sender: FDA-Public Use
  Company Number: AU-AMGEN-US305059

PATIENT
  Sex: Female

DRUGS (3)
  1. ROMIPLOSTIM - OBSERVATION/NO DRUG [Suspect]
     Indication: IDIOPATHIC THROMBOCYTOPENIC PURPURA
  2. FILGRASTIM [Suspect]
  3. TRANEXAMIC ACID [Suspect]

REACTIONS (2)
  - ABDOMINAL PAIN [None]
  - DYSPNOEA [None]
